FAERS Safety Report 15570859 (Version 2)
Quarter: 2018Q4

REPORT INFORMATION
  Report Type: Spontaneous
  Country: DE (occurrence: DE)
  Receive Date: 20181031
  Receipt Date: 20181207
  Transmission Date: 20190205
  Serious: Yes (Other)
  Sender: FDA-Public Use
  Company Number: DE-009507513-1810DEU013405

PATIENT
  Age: 32 Year
  Sex: Female

DRUGS (1)
  1. NASONEX [Suspect]
     Active Substance: MOMETASONE FUROATE
     Indication: NASAL POLYPS
     Dosage: 1 TO 2 PUFFS, ONCE A DAY
     Route: 045
     Dates: start: 20180709, end: 20181116

REACTIONS (14)
  - Menstrual disorder [Unknown]
  - Thyroid function test abnormal [Recovering/Resolving]
  - Impatience [Unknown]
  - Cardiac flutter [Unknown]
  - Alopecia [Recovering/Resolving]
  - Mood swings [Recovering/Resolving]
  - Fatigue [Unknown]
  - Dry skin [Unknown]
  - Gingival recession [Unknown]
  - General physical health deterioration [Recovering/Resolving]
  - Quality of life decreased [Unknown]
  - Stress [Unknown]
  - Agitation [Recovering/Resolving]
  - Headache [Recovering/Resolving]

NARRATIVE: CASE EVENT DATE: 2018
